FAERS Safety Report 15587401 (Version 5)
Quarter: 2019Q2

REPORT INFORMATION
  Report Type: Spontaneous
  Country: GR (occurrence: GR)
  Receive Date: 20181105
  Receipt Date: 20190510
  Transmission Date: 20190711
  Serious: Yes (Death, Life-Threatening, Hospitalization)
  Sender: FDA-Public Use
  Company Number: GR-MYLANLABS-2018M1082303

PATIENT
  Age: 2 Year
  Sex: Male

DRUGS (13)
  1. ACICLOVIR [Suspect]
     Active Substance: ACYCLOVIR
     Indication: INFECTIOUS MONONUCLEOSIS
     Dosage: UNK
     Route: 065
  2. ETOPOSIDE. [Suspect]
     Active Substance: ETOPOSIDE
     Indication: INFECTIOUS MONONUCLEOSIS
     Dosage: UNK
     Route: 065
  3. ALBUMINE [Suspect]
     Active Substance: ALBUMIN HUMAN
     Indication: HAEMOPHAGOCYTIC LYMPHOHISTIOCYTOSIS
     Dosage: UNK
     Route: 065
  4. MEROPENEM. [Suspect]
     Active Substance: MEROPENEM
     Indication: PRODUCT USED FOR UNKNOWN INDICATION
     Dosage: UNK
     Route: 065
  5. ALBUMINE [Suspect]
     Active Substance: ALBUMIN HUMAN
     Indication: INFECTIOUS MONONUCLEOSIS
  6. DEXAMETHASONE. [Suspect]
     Active Substance: DEXAMETHASONE
     Indication: INFECTIOUS MONONUCLEOSIS
     Dosage: UNK
     Route: 041
  7. GANCICLOVIR. [Suspect]
     Active Substance: GANCICLOVIR
     Indication: INFECTIOUS MONONUCLEOSIS
     Dosage: UNK
     Route: 065
  8. METHYLPREDNISOLONE. [Suspect]
     Active Substance: METHYLPREDNISOLONE
     Indication: INFECTIOUS MONONUCLEOSIS
     Dosage: UNK
     Route: 065
  9. DEXAMETHASONE. [Suspect]
     Active Substance: DEXAMETHASONE
     Indication: HAEMOPHAGOCYTIC LYMPHOHISTIOCYTOSIS
  10. RIFAXIMIN. [Suspect]
     Active Substance: RIFAXIMIN
     Indication: INFECTIOUS MONONUCLEOSIS
     Dosage: UNK
     Route: 065
  11. METRONIDAZOLE. [Suspect]
     Active Substance: METRONIDAZOLE
     Indication: INFECTIOUS MONONUCLEOSIS
     Dosage: UNK
     Route: 065
  12. METHYLPREDNISOLONE. [Suspect]
     Active Substance: METHYLPREDNISOLONE
     Indication: HAEMOPHAGOCYTIC LYMPHOHISTIOCYTOSIS
     Dosage: 2 MILLIGRAM/KILOGRAM
     Route: 065
  13. TEICOPLANIN [Suspect]
     Active Substance: TEICOPLANIN
     Indication: INFECTIOUS MONONUCLEOSIS
     Dosage: UNK
     Route: 065

REACTIONS (1)
  - Drug ineffective [Fatal]
